FAERS Safety Report 18188900 (Version 2)
Quarter: 2020Q3

REPORT INFORMATION
  Report Type: Report from Study
  Country: PK (occurrence: PK)
  Receive Date: 20200824
  Receipt Date: 20200904
  Transmission Date: 20201103
  Serious: Yes (Death, Hospitalization)
  Sender: FDA-Public Use
  Company Number: NVSC2020PK232813

PATIENT
  Age: 64 Year
  Sex: Male

DRUGS (1)
  1. GALVUS MET [Suspect]
     Active Substance: METFORMIN HYDROCHLORIDE\VILDAGLIPTIN
     Indication: DIABETES MELLITUS
     Dosage: 1 DF, BID
     Route: 048
     Dates: start: 20181008

REACTIONS (13)
  - Restlessness [Fatal]
  - Pallor [Fatal]
  - Myocardial infarction [Fatal]
  - Dyspnoea [Fatal]
  - Pain in extremity [Fatal]
  - Pain in jaw [Fatal]
  - Chest discomfort [Fatal]
  - Feeling cold [Fatal]
  - Renal impairment [Unknown]
  - Choking [Fatal]
  - Urine output decreased [Unknown]
  - Hyperhidrosis [Fatal]
  - Fatigue [Fatal]
